FAERS Safety Report 7370695-1 (Version None)
Quarter: 2011Q1

REPORT INFORMATION
  Report Type: 
  Country: None (occurrence: None)
  Receive Date: 20110323
  Receipt Date: 20110301
  Transmission Date: 20110831
  Serious: No
  Sender: FDA-Public Use
  Company Number: US-BAYER-2011-020200

PATIENT
  Sex: Female
  Weight: 60 kg

DRUGS (11)
  1. ALEVE (CAPLET) [Suspect]
     Indication: PLANTAR FASCIITIS
  2. EVISTA [Concomitant]
     Dosage: UNK
  3. TIMOPTIC [Concomitant]
     Dosage: UNK
  4. ALEVE (CAPLET) [Suspect]
     Indication: ANALGESIC THERAPY
     Dosage: 1 DF, BID, BOTTLE COUNT 50S
     Route: 048
     Dates: start: 20110201, end: 20110301
  5. ALEVE (CAPLET) [Suspect]
     Indication: TENDONITIS
  6. CALTRATE [CALCIUM CARBONATE] [Concomitant]
     Dosage: UNK
  7. ALEVE (CAPLET) [Suspect]
     Indication: EXOSTOSIS
  8. OMEGA 3-6-9 [Concomitant]
     Dosage: UNK
  9. RESTASIS [Concomitant]
     Dosage: UNK
  10. BAYER ASPIRIN REGIMEN ADULT LOW STRENGTH [Concomitant]
     Dosage: UNK
  11. VITAMIN D [Concomitant]
     Dosage: UNK

REACTIONS (1)
  - NO ADVERSE EVENT [None]
